FAERS Safety Report 4782117-5 (Version None)
Quarter: 2005Q3

REPORT INFORMATION
  Report Type: 
  Country: None (occurrence: None)
  Receive Date: 20050914
  Receipt Date: 20040817
  Transmission Date: 20060218
  Serious: Yes (Hospitalization)
  Sender: FDA-Public Use
  Company Number: 163-20785-04080333

PATIENT
  Age: 78 Year
  Sex: Male

DRUGS (6)
  1. THALOMID [Suspect]
     Indication: MULTIPLE MYELOMA
     Dosage: 100 MG, QHS, ORAL
     Route: 048
     Dates: start: 20040611, end: 20040716
  2. PREDNISONE [Concomitant]
  3. DOXAZOSIN (DOXAZOSIN) [Concomitant]
  4. AVAPRO [Concomitant]
  5. AMARYL [Concomitant]
  6. NORVASC [Concomitant]

REACTIONS (5)
  - CHILLS [None]
  - NAUSEA [None]
  - NIGHT SWEATS [None]
  - PYREXIA [None]
  - SEPSIS [None]
